FAERS Safety Report 16844596 (Version 2)
Quarter: 2019Q4

REPORT INFORMATION
  Report Type: Report from Study
  Country: US (occurrence: US)
  Receive Date: 20190924
  Receipt Date: 20191022
  Transmission Date: 20200122
  Serious: Yes (Hospitalization, Other)
  Sender: FDA-Public Use
  Company Number: US-TAKEDA-2019TUS053404

PATIENT
  Age: 29 Year
  Sex: Male
  Weight: 77.1 kg

DRUGS (2)
  1. IXAZOMIB [Suspect]
     Active Substance: IXAZOMIB
     Indication: RENAL TRANSPLANT
     Dosage: 3 MILLIGRAM
     Route: 048
     Dates: start: 20180901, end: 20190818
  2. DEXAMETHASONE. [Suspect]
     Active Substance: DEXAMETHASONE
     Indication: RENAL TRANSPLANT
     Dosage: 14 MILLIGRAM
     Route: 048
     Dates: start: 20180901, end: 20190818

REACTIONS (1)
  - Embolism [Recovered/Resolved]

NARRATIVE: CASE EVENT DATE: 20190918
